FAERS Safety Report 8620162-X (Version None)
Quarter: 2012Q3

REPORT INFORMATION
  Report Type: 
  Country: None (occurrence: None)
  Receive Date: 20120824
  Receipt Date: 20120820
  Transmission Date: 20120928
  Serious: Yes (Hospitalization)
  Sender: FDA-Public Use
  Company Number: GB-PFIZER INC-2012203386

PATIENT
  Age: 52 Year
  Sex: Female
  Weight: 83.3 kg

DRUGS (8)
  1. CYCLOPHOSPHAMIDE [Suspect]
     Indication: BREAST CANCER
     Dosage: 500 MG/M2, EVERY 3 WEEKS
     Route: 042
     Dates: start: 20120702
  2. FLUOROURACIL [Suspect]
     Indication: BREAST CANCER
     Dosage: 500 MG, EVERY 3 WEEKS
     Route: 042
     Dates: start: 20120702
  3. EPIRUBICIN HYDROCHLORIDE [Suspect]
     Indication: BREAST CANCER
     Dosage: 100 MG/M2, EVERY 3 WEEKS
     Route: 042
     Dates: start: 20120702
  4. FLUOROURACIL [Suspect]
     Dosage: 1000 MG/M2, EVERY 3 WEEKS
     Route: 042
  5. PERTUZUMAB [Suspect]
     Indication: BREAST CANCER
  6. EPIRUBICIN HYDROCHLORIDE [Suspect]
     Dosage: 200 MG/M2, EVERY 3 WEEKS
     Route: 042
  7. CYCLOPHOSPHAMIDE [Suspect]
     Dosage: 1000 MG/M2, EVERY 3 WEEKS
     Route: 042
  8. TRASTUZUMAB [Suspect]
     Indication: BREAST CANCER

REACTIONS (3)
  - DIARRHOEA INFECTIOUS [None]
  - NEUTROPENIC SEPSIS [None]
  - PYREXIA [None]
